FAERS Safety Report 6942002-7 (Version None)
Quarter: 2010Q3

REPORT INFORMATION
  Report Type: 
  Country: None (occurrence: None)
  Receive Date: 20100826
  Receipt Date: 20100817
  Transmission Date: 20110219
  Serious: Yes (Hospitalization)
  Sender: FDA-Public Use
  Company Number: US-JNJFOC-20100806499

PATIENT
  Sex: Female
  Weight: 69.85 kg

DRUGS (5)
  1. FENTANYL-100 [Suspect]
     Indication: PRODUCT USED FOR UNKNOWN INDICATION
     Dosage: 100UG/HR+50UG/HR
     Route: 062
  2. FENTANYL CITRATE [Suspect]
     Indication: PRODUCT USED FOR UNKNOWN INDICATION
     Dosage: 100UG/HR+50UG/HR
     Route: 062
  3. FENTANYL CITRATE [Suspect]
     Indication: BACK PAIN
     Dosage: 100UG/HR+50UG/HR
     Route: 062
  4. MORPHINE [Concomitant]
     Indication: PAIN
     Route: 048
  5. DILAUDID [Concomitant]
     Indication: BREAKTHROUGH PAIN
     Route: 048

REACTIONS (10)
  - APPLICATION SITE IRRITATION [None]
  - APPLICATION SITE PAIN [None]
  - APPLICATION SITE RASH [None]
  - APPLICATION SITE REACTION [None]
  - BACK DISORDER [None]
  - DRUG ADMINISTERED AT INAPPROPRIATE SITE [None]
  - DRUG INEFFECTIVE [None]
  - PAIN [None]
  - PRODUCT ADHESION ISSUE [None]
  - WRONG TECHNIQUE IN DRUG USAGE PROCESS [None]
